FAERS Safety Report 18301029 (Version 2)
Quarter: 2020Q4

REPORT INFORMATION
  Report Type: Other
  Country: JP (occurrence: JP)
  Receive Date: 20200923
  Receipt Date: 20201012
  Transmission Date: 20210113
  Serious: Yes (Death)
  Sender: FDA-Public Use
  Company Number: JP-ROCHE-2679994

PATIENT
  Age: 80 Year
  Sex: Female

DRUGS (17)
  1. CODEINE PHOSPHATE HEMIHYDRATE [Concomitant]
     Active Substance: CODEINE PHOSPHATE
     Dosage: DOSE INTERVAL UNCERTAINTY
     Route: 065
     Dates: start: 20200220, end: 20200820
  2. DAIPHEN [Concomitant]
     Active Substance: SULFAMETHOXAZOLE\TRIMETHOPRIM
     Route: 048
     Dates: end: 20200820
  3. REBAMIPIDE [Concomitant]
     Active Substance: REBAMIPIDE
     Indication: PROPHYLAXIS
     Dosage: DOSE INTERVAL UNCERTAINTY
     Route: 065
     Dates: start: 20200311, end: 20200820
  4. BEVACIZUMAB. [Suspect]
     Active Substance: BEVACIZUMAB
     Indication: NON-SMALL CELL LUNG CANCER
     Dosage: DOSE INTERVAL UNCERTAINTY
     Route: 041
     Dates: start: 20200331, end: 20200720
  5. AMBROXOL HYDROCHLORIDE [Concomitant]
     Active Substance: AMBROXOL HYDROCHLORIDE
     Dosage: DOSE INTERVAL UNCERTAINTY
     Route: 065
     Dates: end: 20200820
  6. CALONAL [Concomitant]
     Active Substance: ACETAMINOPHEN
     Dosage: DOSE INTERVAL UNCERTAINTY
     Route: 065
     Dates: start: 20200220, end: 20200820
  7. NAIXAN [Suspect]
     Active Substance: NAPROXEN SODIUM
     Indication: PRODUCT USED FOR UNKNOWN INDICATION
     Dosage: DOSE INTERVAL UNCERTAINTY
     Route: 048
     Dates: start: 20200311, end: 20200820
  8. THYRADIN [Concomitant]
     Active Substance: LEVOTHYROXINE
     Dosage: DOSE INTERVAL UNCERTAINTY
     Route: 065
     Dates: start: 20200428, end: 20200820
  9. LANSOPRAZOLE. [Concomitant]
     Active Substance: LANSOPRAZOLE
     Indication: PROPHYLAXIS
     Dosage: DOSE INTERVAL UNCERTAINTY
     Route: 065
     Dates: start: 20200311, end: 20200820
  10. PACLITAXEL. [Concomitant]
     Active Substance: PACLITAXEL
     Indication: NON-SMALL CELL LUNG CANCER
     Dosage: DOSE INTERVAL UNCERTAINTY
     Route: 041
     Dates: start: 20200331, end: 20200623
  11. PREDONINE [Suspect]
     Active Substance: PREDNISOLONE
     Indication: MALAISE
     Dosage: DOSE INTERVAL UNCERTAINTY
     Route: 065
     Dates: start: 20200720, end: 20200820
  12. PREDONINE [Suspect]
     Active Substance: PREDNISOLONE
     Indication: DECREASED APPETITE
  13. MEDICON TABLETS (JAPAN) [Concomitant]
     Dosage: DOSE INTERVAL UNCERTAINTY
     Route: 065
     Dates: start: 20200221, end: 20200820
  14. CARBOPLATIN. [Concomitant]
     Active Substance: CARBOPLATIN
     Indication: NON-SMALL CELL LUNG CANCER
     Dosage: DOSE INTERVAL UNCERTAINTY
     Route: 041
     Dates: start: 20200331, end: 20200623
  15. ATEZOLIZUMAB. [Suspect]
     Active Substance: ATEZOLIZUMAB
     Indication: NON-SMALL CELL LUNG CANCER
     Dosage: DOSE INTERVAL UNCERTAINTY
     Route: 041
     Dates: start: 20200331, end: 20200720
  16. FUROSEMIDE. [Concomitant]
     Active Substance: FUROSEMIDE
     Dosage: DOSE INTERVAL UNCERTAINTY
     Route: 065
     Dates: start: 20200323, end: 20200820
  17. PROMAC (JAPAN) [Concomitant]
     Indication: STOMATITIS
     Dosage: DOSE INTERVAL UNCERTAINTY
     Route: 065
     Dates: end: 20200820

REACTIONS (6)
  - Diarrhoea [Unknown]
  - Sudden death [Fatal]
  - Haemoptysis [Fatal]
  - Decreased appetite [Unknown]
  - Haemoptysis [Unknown]
  - Malaise [Unknown]

NARRATIVE: CASE EVENT DATE: 20200819
